FAERS Safety Report 14195830 (Version 2)
Quarter: 2017Q4

REPORT INFORMATION
  Report Type: Spontaneous
  Country: IL (occurrence: IL)
  Receive Date: 20171116
  Receipt Date: 20171222
  Transmission Date: 20180321
  Serious: Yes (Other)
  Sender: FDA-Public Use
  Company Number: IL-NOVOPROD-572506

PATIENT
  Sex: Male

DRUGS (1)
  1. NORDITROPIN [Suspect]
     Active Substance: SOMATROPIN
     Indication: GROWTH RETARDATION
     Dosage: DOSAGE DESCRIBED AS THE ACCEPTED DOSAGE ACCORDING TO WEIGHT AND AGE
     Route: 065

REACTIONS (4)
  - Hand fracture [Recovered/Resolved]
  - Hand fracture [Unknown]
  - Tibia fracture [Recovered/Resolved]
  - Fall [Unknown]
